FAERS Safety Report 7389248-4 (Version None)
Quarter: 2011Q2

REPORT INFORMATION
  Report Type: 
  Country: None (occurrence: None)
  Receive Date: 20110401
  Receipt Date: 20110324
  Transmission Date: 20111010
  Serious: Yes (Hospitalization)
  Sender: FDA-Public Use
  Company Number: ES-BAYER-2011-025717

PATIENT
  Age: 79 Year
  Sex: Male

DRUGS (8)
  1. ATROVENT [Concomitant]
  2. OMEPRAZOLE [Concomitant]
  3. MIMPARA [CINACALCET HYDROCHLORIDE] [Concomitant]
  4. SEVELAMER [Concomitant]
  5. LERCADIP [Concomitant]
  6. ADIRO 100 MG COMPRIMIDOS RECUBIERTOS , 30 COMPRIMIDOS / ACETILSALICILI [Suspect]
     Dosage: 100 MG, UNK
     Dates: end: 20100812
  7. INNOHEP [Interacting]
     Route: 058
     Dates: end: 20100812
  8. VENTOLIN [Concomitant]

REACTIONS (5)
  - DRUG INTERACTION [None]
  - HAEMATOCRIT DECREASED [None]
  - LOWER GASTROINTESTINAL HAEMORRHAGE [None]
  - DIVERTICULUM INTESTINAL [None]
  - RECTAL POLYP [None]
